FAERS Safety Report 5470237-1 (Version None)
Quarter: 2007Q3

REPORT INFORMATION
  Report Type: 
  Country: None (occurrence: None)
  Receive Date: 20070927
  Receipt Date: 20070918
  Transmission Date: 20080115
  Serious: Yes (Disabling)
  Sender: FDA-Public Use
  Company Number: FR-ABBOTT-07P-056-0417415-00

PATIENT
  Sex: Male

DRUGS (5)
  1. MICROPAKINE GRANULE [Suspect]
     Indication: EPILEPSY
     Route: 048
  2. MICROPAKINE GRANULE [Suspect]
     Route: 048
     Dates: start: 20070201
  3. MICROPAKINE GRANULE [Suspect]
     Route: 048
  4. MICROPAKINE GRANULE [Suspect]
     Dates: start: 20070424, end: 20070501
  5. MICROPAKINE GRANULE [Suspect]
     Dates: start: 20070501

REACTIONS (8)
  - COUGH [None]
  - DISTURBANCE IN ATTENTION [None]
  - DYSPHAGIA [None]
  - ENCEPHALOPATHY [None]
  - HYPERAMMONAEMIA [None]
  - HYPOTHERMIA [None]
  - METABOLIC ENCEPHALOPATHY [None]
  - SOMNOLENCE [None]
